FAERS Safety Report 4471296-5 (Version None)
Quarter: 2004Q4

REPORT INFORMATION
  Report Type: 
  Country: None (occurrence: None)
  Receive Date: 20041011
  Receipt Date: 20041004
  Transmission Date: 20050328
  Serious: Yes (Life-Threatening, Hospitalization, Other)
  Sender: FDA-Public Use
  Company Number: US-MERCK-0410USA00458

PATIENT
  Age: 51 Year
  Sex: Female

DRUGS (7)
  1. XANAX [Concomitant]
     Route: 065
  2. BENADRYL [Concomitant]
     Route: 065
  3. LASIX [Concomitant]
     Route: 065
  4. NEURONTIN [Concomitant]
     Route: 065
  5. HUMALOG [Concomitant]
     Route: 065
  6. VIOXX [Suspect]
     Route: 048
  7. VIOXX [Suspect]
     Route: 048

REACTIONS (1)
  - CARDIAC DISORDER [None]
